FAERS Safety Report 25645525 (Version 2)
Quarter: 2025Q3

REPORT INFORMATION
  Report Type: Report from Study
  Country: CA (occurrence: CA)
  Receive Date: 20250805
  Receipt Date: 20250807
  Transmission Date: 20251021
  Serious: Yes (Hospitalization, Other)
  Sender: NOVARTIS
  Company Number: CA-002147023-NVSC2024CA178874

PATIENT
  Age: 34 Year
  Sex: Female

DRUGS (4)
  1. COSENTYX [Suspect]
     Active Substance: SECUKINUMAB
     Indication: Ankylosing spondylitis
     Dosage: 150 MG, QMO
     Route: 058
     Dates: start: 20240709
  2. COSENTYX [Suspect]
     Active Substance: SECUKINUMAB
     Dosage: 300 MG, Q4W
     Route: 058
  3. COSENTYX [Suspect]
     Active Substance: SECUKINUMAB
     Dosage: 300 MG, QMO
     Route: 058
     Dates: end: 20250624
  4. COSENTYX [Suspect]
     Active Substance: SECUKINUMAB
     Dosage: 300 MG, QMO
     Route: 058

REACTIONS (21)
  - Pyrexia [Unknown]
  - Oropharyngeal pain [Unknown]
  - Fatigue [Unknown]
  - Headache [Unknown]
  - Rash [Unknown]
  - Feeding disorder [Unknown]
  - Vomiting [Unknown]
  - Pancreatitis [Unknown]
  - Hepatitis [Unknown]
  - Thrombosis [Unknown]
  - Gastritis [Unknown]
  - Pharyngitis [Unknown]
  - Pleural effusion [Unknown]
  - Anaemia [Unknown]
  - Arthralgia [Unknown]
  - Symptom recurrence [Unknown]
  - Illness [Unknown]
  - Pain [Unknown]
  - Ear pain [Unknown]
  - Sinus congestion [Unknown]
  - Drug intolerance [Unknown]

NARRATIVE: CASE EVENT DATE: 20240901
